FAERS Safety Report 10276407 (Version 1)
Quarter: 2014Q3

REPORT INFORMATION
  Report Type: Spontaneous
  Country: US (occurrence: US)
  Receive Date: 20140703
  Receipt Date: 20140703
  Transmission Date: 20150326
  Serious: No
  Sender: FDA-Public Use
  Company Number: US-BAYER-2014-099176

PATIENT
  Age: 73 Year
  Sex: Female
  Weight: 66 kg

DRUGS (7)
  1. SYNTHROID [Concomitant]
     Active Substance: LEVOTHYROXINE SODIUM
     Indication: HYPOTHYROIDISM
     Dosage: TWO 112 MCG TABLETS ONCE A DAY
     Route: 048
     Dates: start: 1989
  2. MELOXICAM. [Concomitant]
     Active Substance: MELOXICAM
     Indication: SCOLIOSIS
     Dosage: ONE 7.25 MG TABLET PER DAY
     Route: 048
     Dates: start: 2009
  3. LUTEIN [Concomitant]
     Active Substance: LUTEIN
     Indication: SUPPLEMENTATION THERAPY
     Dosage: ON 20MG CAPSULE PER DAY
     Route: 048
     Dates: start: 2009
  4. CALTRATE [CALCIUM CARBONATE] [Concomitant]
     Indication: SUPPLEMENTATION THERAPY
     Dosage: TWO 600MG TABLETS PER DAY
     Route: 048
     Dates: start: 1994
  5. ESTRADIOL HEMIHYDRATE (PATCH) [Suspect]
     Active Substance: ESTRADIOL HEMIHYDRATE
     Indication: HOT FLUSH
     Dosage: 0,025 MG/WEEK
     Route: 062
     Dates: start: 20140414
  6. ASPIRIN. [Concomitant]
     Active Substance: ASPIRIN
     Indication: BLOOD DISORDER
     Dosage: ONE 81 MG TABLET PER DAY
     Route: 048
     Dates: start: 2004
  7. VITAMIN E [Concomitant]
     Active Substance: .ALPHA.-TOCOPHEROL
     Indication: SUPPLEMENTATION THERAPY
     Dosage: ONE 400MG CAPSULE PER DAY
     Route: 048
     Dates: start: 2009

REACTIONS (2)
  - Hot flush [Not Recovered/Not Resolved]
  - Drug ineffective [Not Recovered/Not Resolved]
